FAERS Safety Report 8273055 (Version 3)
Quarter: 2013Q1

REPORT INFORMATION
  Report Type: Spontaneous
  Country: AU (occurrence: AU)
  Receive Date: 20111202
  Receipt Date: 20130213
  Transmission Date: 20140127
  Serious: Yes (Life-Threatening, Hospitalization, Other)
  Sender: FDA-Public Use
  Company Number: AU-JNJFOC-20111111564

PATIENT
  Sex: Male
  Weight: 95 kg

DRUGS (2)
  1. STELARA [Suspect]
     Indication: PSORIASIS
     Route: 058
  2. STELARA [Suspect]
     Indication: PSORIASIS
     Route: 058

REACTIONS (2)
  - Empyema [Recovered/Resolved]
  - Pneumonia [Recovered/Resolved]
